FAERS Safety Report 10023742 (Version 2)
Quarter: 2014Q1

REPORT INFORMATION
  Report Type: Spontaneous
  Country: DE (occurrence: DE)
  Receive Date: 20140320
  Receipt Date: 20140320
  Transmission Date: 20141002
  Serious: Yes (Hospitalization)
  Sender: FDA-Public Use
  Company Number: GXKR2014DE001092

PATIENT
  Age: 80 Year
  Sex: Male
  Weight: 70 kg

DRUGS (1)
  1. SIMVASTATIN 1A PHARMA [Suspect]
     Dosage: 20 MG, QHS
     Route: 048
     Dates: start: 2011

REACTIONS (5)
  - Anaemia [Unknown]
  - Muscular dystrophy [Unknown]
  - Myalgia [Unknown]
  - Nausea [Unknown]
  - Rash [Unknown]
